FAERS Safety Report 9911497 (Version 2)
Quarter: 2014Q1

REPORT INFORMATION
  Report Type: Spontaneous
  Country: SE (occurrence: SE)
  Receive Date: 20140219
  Receipt Date: 20140304
  Transmission Date: 20141002
  Serious: Yes (Hospitalization)
  Sender: FDA-Public Use
  Company Number: PHHY2014SE017447

PATIENT
  Age: 66 Year
  Sex: Male

DRUGS (5)
  1. METFORMIN [Suspect]
     Indication: TYPE 2 DIABETES MELLITUS
     Dosage: 1000 MG, TID
  2. WARFARIN [Concomitant]
  3. CORTISONE [Concomitant]
  4. ALLOPURINOL [Concomitant]
     Indication: GOUT
  5. ACE INHIBITORS [Concomitant]

REACTIONS (25)
  - Toxicity to various agents [Recovered/Resolved]
  - Metabolic acidosis [Recovered/Resolved]
  - Lactic acidosis [Recovered/Resolved]
  - Dyspnoea [Recovered/Resolved]
  - Blood pressure increased [Recovered/Resolved]
  - General physical health deterioration [Recovered/Resolved]
  - Abdominal pain [Recovered/Resolved]
  - Nausea [Recovered/Resolved]
  - Vomiting [Recovered/Resolved]
  - Back pain [Recovered/Resolved]
  - Respiratory disorder [Recovered/Resolved]
  - Altered state of consciousness [Recovered/Resolved]
  - Blood glucose decreased [Recovered/Resolved]
  - Oliguria [Recovered/Resolved]
  - Blood creatinine increased [Recovered/Resolved]
  - Malaise [Recovered/Resolved]
  - Shock [Recovered/Resolved]
  - Mean arterial pressure decreased [Recovered/Resolved]
  - Hypotension [Recovered/Resolved]
  - Heart rate increased [Recovered/Resolved]
  - Cardiac failure [Recovered/Resolved]
  - Vascular resistance systemic decreased [Recovered/Resolved]
  - Cardiovascular insufficiency [Recovered/Resolved]
  - Hypervolaemia [Recovered/Resolved]
  - Oedema peripheral [Recovered/Resolved]
